FAERS Safety Report 11057329 (Version 2)
Quarter: 2015Q3

REPORT INFORMATION
  Report Type: Report from Study
  Country: CA (occurrence: CA)
  Receive Date: 20150422
  Receipt Date: 20150702
  Transmission Date: 20151125
  Serious: Yes (Death, Hospitalization, Other)
  Sender: FDA-Public Use
  Company Number: CA-GILEAD-2015-0149657

PATIENT
  Age: 65 Year
  Sex: Male
  Weight: 65 kg

DRUGS (7)
  1. ANUSOL HC                          /00028604/ [Concomitant]
  2. LASIX [Concomitant]
     Active Substance: FUROSEMIDE
     Indication: ASCITES
  3. CALCIUM [Concomitant]
     Active Substance: CALCIUM
  4. LEDIPASVIR/SOFOSBUVIR [Suspect]
     Active Substance: LEDIPASVIR\SOFOSBUVIR
     Indication: HEPATITIS C
     Dosage: 1 DF, QD
     Route: 048
     Dates: start: 20150113, end: 201504
  5. AMILORIDE [Concomitant]
     Active Substance: AMILORIDE
     Indication: ASCITES
  6. NADOLOL. [Concomitant]
     Active Substance: NADOLOL
  7. OMEPRAZOLE. [Concomitant]
     Active Substance: OMEPRAZOLE
     Dosage: 40 MG, QD
     Route: 048

REACTIONS (9)
  - Hepatic encephalopathy [Recovered/Resolved]
  - Hypovolaemic shock [Recovered/Resolved]
  - Chronic hepatic failure [Fatal]
  - Diarrhoea [Unknown]
  - Blood pressure systolic decreased [Recovered/Resolved]
  - Ascites [Not Recovered/Not Resolved]
  - Decreased appetite [Unknown]
  - Mental status changes [Recovered/Resolved]
  - Depression [Unknown]

NARRATIVE: CASE EVENT DATE: 20150407
